FAERS Safety Report 14569372 (Version 1)
Quarter: 2018Q1

REPORT INFORMATION
  Report Type: Report from Study
  Country: US (occurrence: US)
  Receive Date: 20180223
  Receipt Date: 20180223
  Transmission Date: 20180509
  Serious: No
  Sender: FDA-Public Use
  Company Number: US-ALEXION PHARMACEUTICALS INC.-A201801553

PATIENT
  Sex: Female

DRUGS (1)
  1. STRENSIQ [Suspect]
     Active Substance: ASFOTASE ALFA
     Indication: PRODUCT USED FOR UNKNOWN INDICATION
     Dosage: UNK
     Route: 065

REACTIONS (6)
  - Abdominal discomfort [Unknown]
  - Chills [Recovered/Resolved]
  - Joint injury [Unknown]
  - Dyspnoea [Unknown]
  - Blood urine present [Unknown]
  - Dizziness [Unknown]

NARRATIVE: CASE EVENT DATE: 201703
